FAERS Safety Report 7090651-0 (Version None)
Quarter: 2010Q4

REPORT INFORMATION
  Report Type: 
  Country: None (occurrence: None)
  Receive Date: 20101109
  Receipt Date: 20090402
  Transmission Date: 20110411
  Serious: No
  Sender: FDA-Public Use
  Company Number: US-KINGPHARMUSA00001-K200900386

PATIENT
  Sex: Female
  Weight: 63.492 kg

DRUGS (2)
  1. FLECTOR [Suspect]
     Indication: GOUT
     Dosage: 1 PATCH, SINGLE
     Route: 061
     Dates: start: 20090115, end: 20090115
  2. ACTONEL [Concomitant]
     Indication: BONE DISORDER
     Route: 048

REACTIONS (5)
  - APPLICATION SITE ERYTHEMA [None]
  - APPLICATION SITE OEDEMA [None]
  - APPLICATION SITE PAIN [None]
  - DRUG INEFFECTIVE [None]
  - GAIT DISTURBANCE [None]
